FAERS Safety Report 15173037 (Version 1)
Quarter: 2018Q3

REPORT INFORMATION
  Report Type: Spontaneous
  Country: FR (occurrence: FR)
  Receive Date: 20180720
  Receipt Date: 20180720
  Transmission Date: 20181010
  Serious: Yes (Hospitalization, Other)
  Sender: FDA-Public Use
  Company Number: FR-BRISTOL-MYERS SQUIBB COMPANY-BMS-2018-067584

PATIENT
  Age: 71 Year
  Sex: Male

DRUGS (8)
  1. NATISPRAY [Concomitant]
     Active Substance: NITROGLYCERIN
     Indication: ANGINA PECTORIS
     Route: 048
  2. VENTOLINE                          /00139501/ [Concomitant]
     Active Substance: ALBUTEROL
     Indication: ASTHMA
     Route: 048
  3. SERETIDE [Concomitant]
     Active Substance: FLUTICASONE PROPIONATE\SALMETEROL XINAFOATE
     Indication: ASTHMA
     Route: 048
  4. ZOLPIDEM [Suspect]
     Active Substance: ZOLPIDEM\ZOLPIDEM TARTRATE
     Indication: POISONING DELIBERATE
     Dosage: 1 DF, QD
     Route: 048
     Dates: start: 20180606, end: 20180606
  5. RAMIPRIL. [Suspect]
     Active Substance: RAMIPRIL
     Indication: POISONING DELIBERATE
     Dosage: 1 DF, QD
     Route: 048
     Dates: start: 20180606, end: 20180606
  6. ENALAPRIL [Suspect]
     Active Substance: ENALAPRIL
     Indication: POISONING DELIBERATE
     Dosage: 2 DF, QD
     Route: 048
     Dates: start: 20180606, end: 20180606
  7. METFORMIN HYDROCHLORIDE. [Suspect]
     Active Substance: METFORMIN HYDROCHLORIDE
     Indication: POISONING DELIBERATE
     Dosage: 2 DF, QD
     Route: 048
     Dates: start: 20180606, end: 20180606
  8. ZOPICLONE [Suspect]
     Active Substance: ZOPICLONE
     Indication: POISONING DELIBERATE
     Dosage: 2 DF, QD
     Route: 048
     Dates: start: 20180606, end: 20180606

REACTIONS (3)
  - Dysarthria [Unknown]
  - Poisoning deliberate [Unknown]
  - Somnolence [Unknown]

NARRATIVE: CASE EVENT DATE: 20180606
